FAERS Safety Report 8384965-1 (Version None)
Quarter: 2012Q2

REPORT INFORMATION
  Report Type: 
  Country: None (occurrence: None)
  Receive Date: 20120524
  Receipt Date: 20120515
  Transmission Date: 20120825
  Serious: Yes (Other)
  Sender: FDA-Public Use
  Company Number: GB-ELI_LILLY_AND_COMPANY-GB201205005114

PATIENT
  Age: 37 Year
  Sex: Female
  Weight: 92 kg

DRUGS (6)
  1. ASPIRIN [Concomitant]
  2. METFORMIN HCL [Concomitant]
  3. RANITIDINE [Concomitant]
  4. SUMATRIPTAN [Concomitant]
  5. FOLIC ACID [Concomitant]
  6. BYETTA [Suspect]
     Indication: DIABETES MELLITUS
     Dosage: 5 UG, BID
     Route: 058
     Dates: start: 20120412, end: 20120420

REACTIONS (6)
  - INJECTION SITE SWELLING [None]
  - HEADACHE [None]
  - INJECTION SITE PAIN [None]
  - INJECTION SITE ERYTHEMA [None]
  - MALAISE [None]
  - INJECTION SITE URTICARIA [None]
